FAERS Safety Report 7085700-X (Version None)
Quarter: 2010Q4

REPORT INFORMATION
  Report Type: 
  Country: None (occurrence: None)
  Receive Date: 20101027
  Receipt Date: 20101012
  Transmission Date: 20110411
  Serious: Yes (Other)
  Sender: FDA-Public Use
  Company Number: AUR-APL-2010-02566

PATIENT
  Age: 74 Year

DRUGS (3)
  1. ATENOLOL [Suspect]
  2. ENALAPRIL [Suspect]
  3. NIFEDIPINE [Suspect]

REACTIONS (2)
  - FIBROUS HISTIOCYTOMA [None]
  - RASH [None]
